FAERS Safety Report 23688628 (Version 1)
Quarter: 2024Q1

REPORT INFORMATION
  Report Type: Spontaneous
  Country: GB (occurrence: GB)
  Receive Date: 20240329
  Receipt Date: 20240329
  Transmission Date: 20240410
  Serious: Yes (Disabling)
  Sender: FDA-Public Use
  Company Number: None

PATIENT
  Age: 52 Year
  Sex: Female
  Weight: 137 kg

DRUGS (9)
  1. ATORVASTATIN [Suspect]
     Active Substance: ATORVASTATIN
     Indication: Product used for unknown indication
     Dosage: 20 MILLIGRAM, QD
     Route: 048
     Dates: start: 20231221
  2. AMITRIPTYLINE HYDROCHLORIDE [Concomitant]
     Active Substance: AMITRIPTYLINE HYDROCHLORIDE
     Dosage: 1 DOSAGE FORM, QD (AT NIGHT)
     Route: 065
     Dates: start: 20230928
  3. CITALOPRAM [Concomitant]
     Active Substance: CITALOPRAM\CITALOPRAM HYDROBROMIDE
     Dosage: 1 DOSAGE FORM, QD
     Route: 065
     Dates: start: 20231013
  4. COCODAMOL [Concomitant]
     Active Substance: ACETAMINOPHEN\CODEINE PHOSPHATE
     Dosage: UNK, 1-2 UP TO FOUR TIMES A DAY WHEN REQUIRED. NOT MORE THAN 8 IN 24 HOURS (AS NECESSARY)
     Route: 065
     Dates: start: 20240313
  5. NAPROXEN [Concomitant]
     Active Substance: NAPROXEN
     Dosage: 1 DOSAGE FORM, BID
     Route: 065
     Dates: start: 20240313
  6. OMEPRAZOLE [Concomitant]
     Active Substance: OMEPRAZOLE
     Dosage: 2 DOSAGE FORM, QD
     Route: 065
     Dates: start: 20231013
  7. ROSUVASTATIN [Concomitant]
     Active Substance: ROSUVASTATIN
     Dosage: 1 DOSAGE FORM, QD
     Route: 065
     Dates: start: 20240321
  8. RYBELSUS [Concomitant]
     Active Substance: SEMAGLUTIDE
     Dosage: 1 DOSAGE FORM, QD
     Route: 065
     Dates: start: 20240315
  9. TRULICITY [Concomitant]
     Active Substance: DULAGLUTIDE
     Dosage: UNK (USE AS DIRECTED)
     Route: 065
     Dates: start: 20230724, end: 20240207

REACTIONS (4)
  - Urinary incontinence [Recovered/Resolved]
  - Lethargy [Recovered/Resolved]
  - Myalgia [Recovered/Resolved]
  - Fatigue [Unknown]

NARRATIVE: CASE EVENT DATE: 20240201
